FAERS Safety Report 12720713 (Version 3)
Quarter: 2017Q3

REPORT INFORMATION
  Report Type: Spontaneous
  Country: US (occurrence: US)
  Receive Date: 20160907
  Receipt Date: 20170904
  Transmission Date: 20171127
  Serious: Yes (Other)
  Sender: FDA-Public Use
  Company Number: US-AUROBINDO-AUR-APL-2016-11185

PATIENT
  Age: 74 Year
  Sex: Female

DRUGS (1)
  1. VANCOMYCIN [Suspect]
     Active Substance: VANCOMYCIN
     Indication: PRODUCT USED FOR UNKNOWN INDICATION
     Dosage: 1MG/0.1 ML
     Route: 065

REACTIONS (4)
  - Retinal vasculitis [Recovering/Resolving]
  - Retinal haemorrhage [Recovering/Resolving]
  - Product use issue [Recovering/Resolving]
  - Blindness [Recovering/Resolving]
